FAERS Safety Report 6171015-0 (Version None)
Quarter: 2009Q2

REPORT INFORMATION
  Report Type: 
  Country: None (occurrence: None)
  Receive Date: 20090429
  Receipt Date: 20090421
  Transmission Date: 20091009
  Serious: Yes (Hospitalization, Other)
  Sender: FDA-Public Use
  Company Number: US-BRISTOL-MYERS SQUIBB COMPANY-14603211

PATIENT
  Age: 9 Year
  Sex: Male

DRUGS (11)
  1. EFAVIRENZ CAPS [Suspect]
     Route: 048
  2. DIDANOSINE [Suspect]
  3. RALTEGRAVIR [Suspect]
     Route: 048
  4. MYCOPHENOLATE MOFETIL [Suspect]
     Route: 065
  5. NELFINAVIR MESYLATE [Suspect]
     Route: 065
  6. SULFAMETHOXAZOLE AND TRIMETHOPRIM [Suspect]
  7. LAMIVUDINE [Suspect]
  8. ZIDOVUDINE [Suspect]
  9. ABACAVIR SULFATE [Suspect]
  10. SIROLIMUS [Suspect]
  11. PREDNISOLONE [Suspect]

REACTIONS (14)
  - ACUTE HEPATIC FAILURE [None]
  - CACHEXIA [None]
  - DRUG TOXICITY [None]
  - GRAFT DYSFUNCTION [None]
  - HEPATIC ENCEPHALOPATHY [None]
  - HEPATIC FUNCTION ABNORMAL [None]
  - HYPERLIPIDAEMIA [None]
  - HYPERTENSION [None]
  - LYMPHADENOPATHY [None]
  - MYOPATHY [None]
  - PHARYNGITIS [None]
  - RASH [None]
  - RENAL IMPAIRMENT [None]
  - TRANSPLANT REJECTION [None]
